FAERS Safety Report 9564851 (Version 3)
Quarter: 2014Q4

REPORT INFORMATION
  Report Type: Spontaneous
  Country: ES (occurrence: ES)
  Receive Date: 20130930
  Receipt Date: 20141203
  Transmission Date: 20150529
  Serious: Yes (Death, Hospitalization, Other)
  Sender: FDA-Public Use
  Company Number: PHHY2011ES61315

PATIENT
  Age: 78 Year
  Sex: Male

DRUGS (4)
  1. EVEROLIMUS [Suspect]
     Active Substance: EVEROLIMUS
     Dosage: 5 MG, QD
     Route: 065
  2. OCTREOTIDE [Suspect]
     Active Substance: OCTREOTIDE
     Indication: INSULINOMA
     Dosage: 20 MG, EVERY 28 DAYS
     Route: 065
  3. EVEROLIMUS [Suspect]
     Active Substance: EVEROLIMUS
     Indication: INSULINOMA
     Dosage: 10 MG, QD
     Route: 065
  4. DEXAMETHASONE. [Suspect]
     Active Substance: DEXAMETHASONE
     Indication: INSULINOMA
     Dosage: 2 MG, QD
     Route: 065

REACTIONS (4)
  - Hyperglycaemia [Recovered/Resolved]
  - Pulmonary embolism [Fatal]
  - Cushing^s syndrome [Unknown]
  - Pneumonia [Unknown]
